FAERS Safety Report 16078784 (Version 1)
Quarter: 2019Q1

REPORT INFORMATION
  Report Type: Spontaneous
  Country: US (occurrence: US)
  Receive Date: 20190315
  Receipt Date: 20190315
  Transmission Date: 20190418
  Serious: No
  Sender: FDA-Public Use
  Company Number: US-BOIRON INC.-2019BOR00019

PATIENT
  Age: 72 Year
  Sex: Female
  Weight: 81.63 kg

DRUGS (6)
  1. LOVASTATIN. [Concomitant]
     Active Substance: LOVASTATIN
  2. BUPROPION HYDROCHLORIDE XL [Concomitant]
     Active Substance: BUPROPION HYDROCHLORIDE
  3. OSCILLOCOCCINUM [Suspect]
     Active Substance: CAIRINA MOSCHATA HEART/LIVER AUTOLYSATE
     Indication: HOMEOPATHY
     Dosage: 1 DOSAGE UNITS, EVERY 6 HOURS
     Route: 048
     Dates: start: 20190219, end: 20190219
  4. OMEPRAZOLE. [Concomitant]
     Active Substance: OMEPRAZOLE
  5. MELOXICAM. [Concomitant]
     Active Substance: MELOXICAM
  6. CITALOPRAM [Concomitant]
     Active Substance: CITALOPRAM HYDROBROMIDE

REACTIONS (12)
  - Hallucination, visual [Not Recovered/Not Resolved]
  - Blood pressure decreased [Unknown]
  - Pain [Not Recovered/Not Resolved]
  - Oral disorder [Not Recovered/Not Resolved]
  - Oral pain [Not Recovered/Not Resolved]
  - Chills [Not Recovered/Not Resolved]
  - Burn oral cavity [Not Recovered/Not Resolved]
  - Fall [Recovered/Resolved]
  - Cough [Not Recovered/Not Resolved]
  - Visual impairment [Not Recovered/Not Resolved]
  - Bacterial infection [Not Recovered/Not Resolved]
  - Cold sweat [Not Recovered/Not Resolved]

NARRATIVE: CASE EVENT DATE: 201902
